FAERS Safety Report 7079424-2 (Version None)
Quarter: 2010Q4

REPORT INFORMATION
  Report Type: 
  Country: None (occurrence: None)
  Receive Date: 20101102
  Receipt Date: 20101025
  Transmission Date: 20110411
  Serious: Yes (Hospitalization, Other)
  Sender: FDA-Public Use
  Company Number: US-MERCK-0707USA04229

PATIENT
  Age: 61 Year
  Sex: Female
  Weight: 79 kg

DRUGS (2)
  1. FOSAMAX [Suspect]
     Indication: OSTEOPOROSIS
     Route: 048
     Dates: start: 20030726
  2. FOSAMAX [Suspect]
     Route: 048
     Dates: start: 19950101, end: 20030725

REACTIONS (42)
  - ACUTE SINUSITIS [None]
  - ANAESTHETIC COMPLICATION [None]
  - ARTHROPATHY [None]
  - ATROPHIC VULVOVAGINITIS [None]
  - BACK INJURY [None]
  - BASAL CELL CARCINOMA [None]
  - CAUDA EQUINA SYNDROME [None]
  - DEEP VEIN THROMBOSIS [None]
  - DENTAL CARIES [None]
  - DRUG INEFFECTIVE [None]
  - DRY MOUTH [None]
  - EDENTULOUS [None]
  - EMBOLISM VENOUS [None]
  - FACE INJURY [None]
  - FALL [None]
  - FIBROSIS [None]
  - GINGIVAL BLEEDING [None]
  - HEADACHE [None]
  - IMPAIRED HEALING [None]
  - IMPLANT SITE SWELLING [None]
  - INTERVERTEBRAL DISC DEGENERATION [None]
  - JOINT INJURY [None]
  - LABYRINTHITIS [None]
  - LIGAMENT RUPTURE [None]
  - LUMBAR RADICULOPATHY [None]
  - LUMBAR SPINAL STENOSIS [None]
  - LUNG DISORDER [None]
  - LUNG NEOPLASM [None]
  - ORAL HERPES [None]
  - ORAL INFECTION [None]
  - OSTEONECROSIS OF JAW [None]
  - OSTEOPENIA [None]
  - OSTEOPOROSIS [None]
  - POST LAMINECTOMY SYNDROME [None]
  - PYREXIA [None]
  - ROTATOR CUFF SYNDROME [None]
  - SCOLIOSIS [None]
  - SPONDYLOLISTHESIS [None]
  - TEMPOROMANDIBULAR JOINT SYNDROME [None]
  - TOOTH FRACTURE [None]
  - TOOTH LOSS [None]
  - TOOTH RESORPTION [None]
